FAERS Safety Report 4678010-9 (Version None)
Quarter: 2005Q2

REPORT INFORMATION
  Report Type: 
  Country: None (occurrence: None)
  Receive Date: 20050531
  Receipt Date: 20050516
  Transmission Date: 20051028
  Serious: Yes (Hospitalization)
  Sender: FDA-Public Use
  Company Number: US-AMGEN-US133505

PATIENT
  Sex: Male
  Weight: 86.3 kg

DRUGS (13)
  1. ENBREL [Suspect]
     Indication: RHEUMATOID ARTHRITIS
     Route: 058
     Dates: start: 19990201, end: 20050224
  2. DARVOCET-N 100 [Concomitant]
  3. PREDNISONE TAB [Concomitant]
  4. CELEBREX [Concomitant]
  5. KLONOPIN [Concomitant]
  6. PLAVIX [Concomitant]
  7. ALLEGRA [Concomitant]
  8. ZOCOR [Concomitant]
  9. DIOVAN [Concomitant]
  10. ZOLOFT [Concomitant]
  11. ALLOPURINOL [Concomitant]
  12. LACTULOSE [Concomitant]
  13. NEPHRO-CAPS [Concomitant]

REACTIONS (3)
  - FALL [None]
  - LYMPHOMA [None]
  - MENINGIOMA [None]
